FAERS Safety Report 10584750 (Version 1)
Quarter: 2014Q4

REPORT INFORMATION
  Report Type: Spontaneous
  Country: US (occurrence: None)
  Receive Date: 20141113
  Receipt Date: 20141113
  Transmission Date: 20150529
  Serious: Yes (Hospitalization)
  Sender: FDA-Public Use
  Company Number: HYP201410-000072

PATIENT
  Age: 32 Year
  Sex: Female

DRUGS (10)
  1. OMEPRAZOLE. [Concomitant]
     Active Substance: OMEPRAZOLE
  2. RAVICTI [Suspect]
     Active Substance: GLYCEROL PHENYLBUTYRATE
     Indication: AMINO ACID METABOLISM DISORDER
     Dates: start: 201306
  3. LANTUS [Concomitant]
     Active Substance: INSULIN GLARGINE
  4. DICYCLOMINE /00068601/ (DICYCLOVERINE) [Concomitant]
  5. GLYCOPYRROLATE /00196201/ (GLYCOPYRRONIUM) [Concomitant]
  6. RANITIDINE [Concomitant]
     Active Substance: RANITIDINE\RANITIDINE HYDROCHLORIDE
  7. ARGININE [Concomitant]
     Active Substance: ARGININE
  8. CALCIUM [Concomitant]
     Active Substance: CALCIUM
  9. NOVOLOG [Concomitant]
     Active Substance: INSULIN ASPART
  10. LACTULOSE. [Concomitant]
     Active Substance: LACTULOSE

REACTIONS (1)
  - Migraine [None]

NARRATIVE: CASE EVENT DATE: 20140926
